FAERS Safety Report 9421818 (Version 1)
Quarter: 2013Q3

REPORT INFORMATION
  Report Type: Spontaneous
  Country: US (occurrence: US)
  Receive Date: 20130726
  Receipt Date: 20130726
  Transmission Date: 20140515
  Serious: No
  Sender: FDA-Public Use
  Company Number: US-009507513-1307USA014624

PATIENT
  Age: 56 Year
  Sex: Male

DRUGS (4)
  1. TEMODAR [Suspect]
     Indication: GLIOBLASTOMA MULTIFORME
     Dosage: 5 CONSECUTIVE DAYS IN EVERY 28 DAYS, CYCLICAL (TOTAL DOSE: 330 MG)
     Route: 048
     Dates: start: 201303
  2. BACTRIM DS [Concomitant]
  3. ZANTAC [Concomitant]
  4. ZOFRAN [Concomitant]

REACTIONS (1)
  - Blood creatinine increased [Not Recovered/Not Resolved]
